FAERS Safety Report 4637014-2 (Version None)
Quarter: 2005Q2

REPORT INFORMATION
  Report Type: 
  Country: None (occurrence: None)
  Receive Date: 20050415
  Receipt Date: 20050128
  Transmission Date: 20051028
  Serious: Yes (Other)
  Sender: FDA-Public Use
  Company Number: 2005AP000109

PATIENT
  Age: 74 Year
  Sex: Male

DRUGS (3)
  1. CARBIDOPA AND LEVODOPA [Suspect]
     Indication: PARKINSONISM
     Dosage: 4 TIMES A DAY; ORAL
     Route: 048
     Dates: start: 20050124, end: 20050128
  2. TRANDATE [Concomitant]
  3. VASOTEC [Concomitant]

REACTIONS (8)
  - CONDITION AGGRAVATED [None]
  - CONFUSIONAL STATE [None]
  - DISORIENTATION [None]
  - DRUG EFFECT DECREASED [None]
  - MUSCLE RIGIDITY [None]
  - PARALYSIS [None]
  - PARKINSON'S DISEASE [None]
  - PHARMACEUTICAL PRODUCT COMPLAINT [None]
